FAERS Safety Report 21483166 (Version 2)
Quarter: 2022Q4

REPORT INFORMATION
  Report Type: Report from Study
  Country: CA (occurrence: CA)
  Receive Date: 20221020
  Receipt Date: 20221021
  Transmission Date: 20230112
  Serious: Yes (Other)
  Sender: FDA-Public Use
  Company Number: CA-JNJFOC-20220709207

PATIENT
  Age: 12 Year
  Sex: Female
  Weight: 32 kg

DRUGS (4)
  1. REMICADE [Suspect]
     Active Substance: INFLIXIMAB
     Indication: Colitis ulcerative
     Dosage: PRESCRIBED 300MG 0,1,4 AND THEN EVERY 4 WEEKS
     Route: 042
     Dates: start: 20220630
  2. REMICADE [Suspect]
     Active Substance: INFLIXIMAB
     Dosage: BASED ON BSA 1.26M2 X 400MG/M2 = 504 ROUNDED UP TO 600MG
     Route: 042
  3. MESALAMINE [Concomitant]
     Active Substance: MESALAMINE
     Indication: Product used for unknown indication
     Dosage: ENEMA AND ORAL
     Route: 065
  4. MESALAMINE [Concomitant]
     Active Substance: MESALAMINE
     Route: 048

REACTIONS (2)
  - Colitis ulcerative [Not Recovered/Not Resolved]
  - Off label use [Unknown]

NARRATIVE: CASE EVENT DATE: 20220101
